FAERS Safety Report 15193185 (Version 1)
Quarter: 2018Q3

REPORT INFORMATION
  Report Type: Spontaneous
  Country: US (occurrence: US)
  Receive Date: 20180725
  Receipt Date: 20180725
  Transmission Date: 20181010
  Serious: No
  Sender: FDA-Public Use
  Company Number: US-GLENMARK PHARMACEUTICALS-2018GMK035888

PATIENT

DRUGS (3)
  1. MONISTAT [Concomitant]
     Active Substance: MICONAZOLE NITRATE
     Indication: VULVOVAGINAL DRYNESS
     Dosage: UNK
     Route: 065
  2. BETAMETHASONE DIPROPIONATE. [Suspect]
     Active Substance: BETAMETHASONE DIPROPIONATE
     Indication: RASH PRURITIC
     Dosage: 1 DF, BID
     Route: 061
     Dates: start: 20180524
  3. MONISTAT [Concomitant]
     Active Substance: MICONAZOLE NITRATE
     Indication: VAGINAL INFECTION

REACTIONS (3)
  - Product administered at inappropriate site [Unknown]
  - Wrong drug administered [Unknown]
  - Drug ineffective [Unknown]

NARRATIVE: CASE EVENT DATE: 201805
